FAERS Safety Report 9164484 (Version 2)
Quarter: 2013Q1

REPORT INFORMATION
  Report Type: Report from Study
  Country: CZ (occurrence: CZ)
  Receive Date: 20130315
  Receipt Date: 20130329
  Transmission Date: 20140127
  Serious: Yes (Hospitalization)
  Sender: FDA-Public Use
  Company Number: CZ-JNJFOC-20130305627

PATIENT
  Age: 52 Year
  Sex: Female

DRUGS (8)
  1. REMICADE [Suspect]
     Indication: RHEUMATOID ARTHRITIS
     Route: 042
     Dates: start: 20080710, end: 20121129
  2. BONVIVA [Concomitant]
     Route: 065
  3. MEDROL [Concomitant]
     Route: 048
  4. METHOTREXATE [Concomitant]
     Route: 048
  5. FOLATE [Concomitant]
     Route: 048
  6. KOMBI-KALZ [Concomitant]
     Dosage: DOSE: 800 (UNITS UNSPECIFIED) 1X1
     Route: 048
  7. VIGANTOL [Concomitant]
     Route: 065
  8. MELOXICAM [Concomitant]
     Route: 065

REACTIONS (3)
  - Angina pectoris [Recovered/Resolved]
  - H1N1 influenza [Recovered/Resolved]
  - Pneumonia klebsiella [Unknown]
